FAERS Safety Report 13244008 (Version 1)
Quarter: 2017Q1

REPORT INFORMATION
  Report Type: Spontaneous
  Country: FR (occurrence: FR)
  Receive Date: 20170217
  Receipt Date: 20170217
  Transmission Date: 20170428
  Serious: Yes (Other)
  Sender: FDA-Public Use
  Company Number: FR-BIOGEN-2017BI00358782

PATIENT
  Age: 47 Year
  Sex: Female

DRUGS (3)
  1. FAMPYRA [Suspect]
     Active Substance: DALFAMPRIDINE
     Indication: GAIT DISTURBANCE
     Route: 065
     Dates: start: 20160930
  2. QIZENDAY [Concomitant]
     Active Substance: BIOTIN
     Indication: SECONDARY PROGRESSIVE MULTIPLE SCLEROSIS
     Route: 048
     Dates: start: 20160628, end: 20170112
  3. LEVOCARNIL [Concomitant]
     Active Substance: LEVOCARNITINE
     Indication: FATIGUE
     Route: 065
     Dates: start: 20160930

REACTIONS (2)
  - Walking disability [Not Recovered/Not Resolved]
  - Dysphagia [Not Recovered/Not Resolved]

NARRATIVE: CASE EVENT DATE: 20161201
